FAERS Safety Report 9652357 (Version 2)
Quarter: 2014Q1

REPORT INFORMATION
  Report Type: Spontaneous
  Country: US (occurrence: None)
  Receive Date: 20131025
  Receipt Date: 20140219
  Transmission Date: 20141002
  Serious: Yes (Other)
  Sender: FDA-Public Use
  Company Number: DSU-2013-04889

PATIENT
  Age: 62 Year
  Sex: Female
  Weight: 65.77 kg

DRUGS (1)
  1. BENICAR [Suspect]
     Indication: HYPERTENSION
     Route: 048
     Dates: start: 2007, end: 2009

REACTIONS (13)
  - Malaise [None]
  - Fatigue [None]
  - Headache [None]
  - Back pain [None]
  - Ear infection [None]
  - Hiatus hernia [None]
  - Post procedural complication [None]
  - Myocardial oedema [None]
  - Sinusitis [None]
  - Abscess neck [None]
  - Pain [None]
  - Toothache [None]
  - Gastrooesophageal reflux disease [None]
